FAERS Safety Report 5286081-4 (Version None)
Quarter: 2007Q1

REPORT INFORMATION
  Report Type: 
  Country: None (occurrence: None)
  Receive Date: 20070329
  Receipt Date: 20070321
  Transmission Date: 20070707
  Serious: Yes (Death, Hospitalization)
  Sender: FDA-Public Use
  Company Number: 238660

PATIENT
  Age: 71 Year
  Sex: Male

DRUGS (3)
  1. AVASTIN [Suspect]
     Indication: COLORECTAL CANCER METASTATIC
     Dosage: 5 MG/KG, Q2W, INTRAVENOUS
     Route: 042
     Dates: start: 20070119
  2. OXALIPLATIN [Concomitant]
  3. CAPECITABINE (CAPECITABINE) [Concomitant]

REACTIONS (1)
  - ABDOMINAL PAIN [None]
